FAERS Safety Report 5046845-9 (Version None)
Quarter: 2006Q3

REPORT INFORMATION
  Report Type: 
  Country: None (occurrence: None)
  Receive Date: 20060705
  Receipt Date: 20060705
  Transmission Date: 20061208
  Serious: Yes (Life-Threatening, Disabling)
  Sender: FDA-Public Use
  Company Number: None

PATIENT
  Age: 68 Year
  Sex: Male
  Weight: 158.759 kg

DRUGS (1)
  1. AMIODARONE HCL [Suspect]
     Indication: HEART RATE IRREGULAR
     Dosage: 2 TABLETS 3 TIMES A DAY X 1WK THEN 2 TAB 2 TIMES A DAY FOR 1WK THEN 2 TABLETS DAILY
     Dates: start: 20050208, end: 20050314

REACTIONS (3)
  - CARDIAC FAILURE CONGESTIVE [None]
  - ILL-DEFINED DISORDER [None]
  - LUNG DISORDER [None]
